FAERS Safety Report 16962556 (Version 1)
Quarter: 2019Q4

REPORT INFORMATION
  Report Type: Spontaneous
  Country: US (occurrence: US)
  Receive Date: 20191025
  Receipt Date: 20191025
  Transmission Date: 20200122
  Serious: Yes (Hospitalization)
  Sender: FDA-Public Use
  Company Number: None

PATIENT
  Age: 93 Year
  Sex: Female
  Weight: 58.5 kg

DRUGS (6)
  1. ALEVE [Suspect]
     Active Substance: NAPROXEN SODIUM
     Indication: ARTHRALGIA
     Dosage: ?          QUANTITY:2 TABLET(S);?
     Route: 048
     Dates: start: 20171001, end: 20181002
  2. SYNTHROID [Concomitant]
     Active Substance: LEVOTHYROXINE SODIUM
  3. MULTIVITAMIN [Concomitant]
     Active Substance: VITAMINS
  4. MULTIVITAMIN [Concomitant]
     Active Substance: VITAMINS
  5. CHOLESTEROL LOWERING MEDICATION [Concomitant]
  6. PRESER VISION VITAMIN [Concomitant]

REACTIONS (4)
  - Rectal haemorrhage [None]
  - Mouth haemorrhage [None]
  - Intentional product use issue [None]
  - Drug ineffective [None]

NARRATIVE: CASE EVENT DATE: 20181001
